FAERS Safety Report 18588382 (Version 5)
Quarter: 2021Q1

REPORT INFORMATION
  Report Type: Report from Study
  Country: None (occurrence: US)
  Receive Date: 20201208
  Receipt Date: 20210223
  Transmission Date: 20210419
  Serious: Yes (Other)
  Sender: FDA-Public Use
  Company Number: US-ABBVIE-20K-163-3677302-00

PATIENT
  Age: 84 Year
  Sex: Female
  Weight: 52.21 kg

DRUGS (2)
  1. VENCLEXTA [Suspect]
     Active Substance: VENETOCLAX
     Indication: PRIMARY AMYLOIDOSIS
     Dosage: TAKE 4 TABLET(S) BY MOUTH EVERY DAY
     Route: 048
     Dates: start: 202007
  2. VENCLEXTA [Suspect]
     Active Substance: VENETOCLAX
     Indication: PLASMA CELL MYELOMA
     Route: 048

REACTIONS (8)
  - Femur fracture [Recovering/Resolving]
  - Diarrhoea [Recovering/Resolving]
  - Renal disorder [Recovering/Resolving]
  - Dizziness [Unknown]
  - Pain in extremity [Recovering/Resolving]
  - Memory impairment [Unknown]
  - Off label use [Unknown]
  - Fall [Recovered/Resolved]

NARRATIVE: CASE EVENT DATE: 20200718
